FAERS Safety Report 24552096 (Version 1)
Quarter: 2024Q4

REPORT INFORMATION
  Report Type: Spontaneous
  Country: US (occurrence: US)
  Receive Date: 20241026
  Receipt Date: 20241026
  Transmission Date: 20250114
  Serious: No
  Sender: ALEXION PHARMACEUTICALS
  Company Number: US-AstraZeneca-CH-00723433A

PATIENT

DRUGS (6)
  1. FASENRA [Suspect]
     Active Substance: BENRALIZUMAB
     Indication: Asthma
  2. FASENRA [Suspect]
     Active Substance: BENRALIZUMAB
  3. FASENRA [Suspect]
     Active Substance: BENRALIZUMAB
  4. FASENRA [Suspect]
     Active Substance: BENRALIZUMAB
  5. NUCALA [Concomitant]
     Active Substance: MEPOLIZUMAB
  6. NUCALA [Concomitant]
     Active Substance: MEPOLIZUMAB
     Route: 065

REACTIONS (1)
  - Respiratory disorder [Unknown]
